FAERS Safety Report 6623968-1 (Version None)
Quarter: 2010Q1

REPORT INFORMATION
  Report Type: 
  Country: None (occurrence: None)
  Receive Date: 20100304
  Receipt Date: 20100222
  Transmission Date: 20100710
  Serious: Yes (Hospitalization)
  Sender: FDA-Public Use
  Company Number: 2009-04607

PATIENT
  Age: 80 Year
  Sex: Female

DRUGS (1)
  1. VELCADE [Suspect]
     Indication: MULTIPLE MYELOMA

REACTIONS (4)
  - ATRIAL FIBRILLATION [None]
  - HYPOTENSION [None]
  - LOWER RESPIRATORY TRACT INFECTION [None]
  - PNEUMONITIS [None]
